FAERS Safety Report 6887242-0 (Version None)
Quarter: 2010Q3

REPORT INFORMATION
  Report Type: 
  Country: None (occurrence: None)
  Receive Date: 20100730
  Receipt Date: 20100722
  Transmission Date: 20110219
  Serious: Yes (Other)
  Sender: FDA-Public Use
  Company Number: US-TEVA-242688USA

PATIENT
  Sex: Female

DRUGS (1)
  1. LEVETIRACETAM TABLETS, 250 MG, 500 MG, 750 MG AND 1000 MG [Suspect]
     Indication: CONVULSION
     Dates: start: 20050501

REACTIONS (1)
  - ABORTION SPONTANEOUS [None]
